FAERS Safety Report 9095776 (Version 1)
Quarter: 2013Q1

REPORT INFORMATION
  Report Type: Spontaneous
  Country: GB (occurrence: None)
  Receive Date: 20130124
  Receipt Date: 20130124
  Transmission Date: 20140127
  Serious: Yes (Other)
  Sender: FDA-Public Use
  Company Number: 2013-00509

PATIENT
  Sex: 0

DRUGS (1)
  1. ACETAMINOPHEN (UNKNOWN) (ACETAMINOPHEN) UNK, UNKUNK [Suspect]
     Indication: PRODUCT USED FOR UNKNOWN INDICATION
     Route: 042

REACTIONS (3)
  - Accidental overdose [None]
  - Incorrect dose administered [None]
  - Medication error [None]
